FAERS Safety Report 8965059 (Version 3)
Quarter: 2018Q4

REPORT INFORMATION
  Report Type: Report from Study
  Country: FR (occurrence: FR)
  Receive Date: 20121214
  Receipt Date: 20181217
  Transmission Date: 20190205
  Serious: Yes (Death, Hospitalization)
  Sender: FDA-Public Use
  Company Number: FR-ROCHE-1166950

PATIENT
  Age: 64 Year
  Sex: Male
  Weight: 54 kg

DRUGS (2)
  1. RITUXIMAB. [Suspect]
     Active Substance: RITUXIMAB
     Indication: NON-HODGKIN^S LYMPHOMA
     Dosage: INDUCTION PHASE, AND FOLLOWING COMPLETION OF THE INDUCTION PHASE, MAINTENANCE PHASE WITH IV RITUX...
     Route: 042
     Dates: start: 20110225, end: 20110921
  2. LEVACT (FRANCE) [Suspect]
     Active Substance: BENDAMUSTINE HYDROCHLORIDE
     Indication: NON-HODGKIN^S LYMPHOMA
     Dosage: LAST DOSE PRIOR TO SAE: 26 MAR 2011?INDUCTION PHASE: TWO COURSES FROM DAYS 1 TO 2 AND DAYS 29 TO 30
     Route: 042
     Dates: start: 20110225, end: 20110326

REACTIONS (3)
  - Hepatic cancer [Fatal]
  - Urinary tract infection [Fatal]
  - General physical condition abnormal [Fatal]

NARRATIVE: CASE EVENT DATE: 20111116
